FAERS Safety Report 23134352 (Version 1)
Quarter: 2023Q4

REPORT INFORMATION
  Report Type: Spontaneous
  Country: US (occurrence: US)
  Receive Date: 20231101
  Receipt Date: 20231101
  Transmission Date: 20240110
  Serious: Yes (Hospitalization, Other)
  Sender: FDA-Public Use
  Company Number: US-PFIZER INC-202300350199

PATIENT
  Sex: Female
  Weight: 72.57 kg

DRUGS (6)
  1. FUROSEMIDE [Suspect]
     Active Substance: FUROSEMIDE
     Dosage: 10 MG
  2. ALBUTEROL [Suspect]
     Active Substance: ALBUTEROL
     Dosage: UNK
  3. BREO ELLIPTA [Suspect]
     Active Substance: FLUTICASONE FUROATE\VILANTEROL TRIFENATATE
     Dosage: 200-25 MCG
  4. METOPROLOL SUCCINATE [Suspect]
     Active Substance: METOPROLOL SUCCINATE
     Dosage: 50 MG
  5. ALENDRONATE [Suspect]
     Active Substance: ALENDRONATE SODIUM
     Indication: Osteoporosis
     Dosage: 70 MG
  6. XARELTO [Suspect]
     Active Substance: RIVAROXABAN
     Dosage: 20 MG

REACTIONS (2)
  - Myocardial infarction [Unknown]
  - Atrial fibrillation [Unknown]
